FAERS Safety Report 5382479-4 (Version None)
Quarter: 2007Q3

REPORT INFORMATION
  Report Type: 
  Country: None (occurrence: None)
  Receive Date: 20070703
  Receipt Date: 20060711
  Transmission Date: 20080115
  Serious: Yes (Other)
  Sender: FDA-Public Use
  Company Number: US-JNJFOC-20060703092

PATIENT
  Age: 11 Year
  Sex: Male
  Weight: 56.246 kg

DRUGS (1)
  1. MOTRIN IB [Suspect]
     Indication: CHEST PAIN
     Dosage: , 1 IN 1 TOTAL, ORAL
     Route: 048
     Dates: start: 20060703, end: 20060703

REACTIONS (1)
  - HYPERSENSITIVITY [None]
